FAERS Safety Report 17736027 (Version 2)
Quarter: 2022Q2

REPORT INFORMATION
  Report Type: Spontaneous
  Country: US (occurrence: US)
  Receive Date: 20200501
  Receipt Date: 20220526
  Transmission Date: 20220721
  Serious: No
  Sender: FDA-Public Use
  Company Number: US-RADIUS HEALTH INC.-2020US000407

PATIENT
  Sex: Female

DRUGS (2)
  1. TYMLOS [Suspect]
     Active Substance: ABALOPARATIDE
     Indication: Osteoporosis postmenopausal
     Dosage: 80MCG, QD
     Route: 058
     Dates: start: 20200121
  2. TYMLOS [Suspect]
     Active Substance: ABALOPARATIDE
     Indication: Osteoporosis
     Dosage: 80MCG, EVERY OTHER DAY
     Route: 058
     Dates: start: 20200121

REACTIONS (4)
  - Neck pain [Unknown]
  - Arthralgia [Unknown]
  - Headache [Recovered/Resolved]
  - Intentional product misuse [Unknown]
